FAERS Safety Report 19744856 (Version 1)
Quarter: 2021Q3

REPORT INFORMATION
  Report Type: Spontaneous
  Country: PT (occurrence: PT)
  Receive Date: 20210825
  Receipt Date: 20210825
  Transmission Date: 20211014
  Serious: Yes (Hospitalization, Other)
  Sender: FDA-Public Use
  Company Number: PT-MICRO LABS LIMITED-ML2021-02108

PATIENT
  Age: 67 Year
  Sex: Female

DRUGS (8)
  1. FUROSEMIDE. [Concomitant]
     Active Substance: FUROSEMIDE
  2. CLARITHROMYCIN. [Suspect]
     Active Substance: CLARITHROMYCIN
  3. GLICLAZIDE [Concomitant]
     Active Substance: GLICLAZIDE
  4. SIMVASTATIN (ANDA 090383) [Suspect]
     Active Substance: SIMVASTATIN
     Indication: DYSLIPIDAEMIA
  5. CIPROFLOXACIN. [Suspect]
     Active Substance: CIPROFLOXACIN
  6. METFORMIN [Concomitant]
     Active Substance: METFORMIN HYDROCHLORIDE
  7. WARFARIN SODIUM. [Concomitant]
     Active Substance: WARFARIN SODIUM
  8. ENALAPRIL MALEATE. [Concomitant]
     Active Substance: ENALAPRIL MALEATE

REACTIONS (2)
  - Rhabdomyolysis [Recovered/Resolved]
  - Drug interaction [Unknown]
